FAERS Safety Report 25003775 (Version 1)
Quarter: 2025Q1

REPORT INFORMATION
  Report Type: Spontaneous
  Country: US (occurrence: None)
  Receive Date: 20250221
  Receipt Date: 20250221
  Transmission Date: 20250409
  Serious: No
  Sender: FDA-CTU
  Company Number: None

PATIENT
  Age: 17 Year
  Sex: Female
  Weight: 94.8 kg

DRUGS (1)
  1. RINVOQ [Suspect]
     Active Substance: UPADACITINIB
     Indication: Hidradenitis
     Dosage: FREQUENCY : DAILY;?
     Route: 048
     Dates: start: 202408

REACTIONS (2)
  - Abscess [None]
  - Intentional dose omission [None]
